FAERS Safety Report 8497414-X (Version None)
Quarter: 2012Q3

REPORT INFORMATION
  Report Type: 
  Country: None (occurrence: None)
  Receive Date: 20120709
  Receipt Date: 20120612
  Transmission Date: 20120928
  Serious: No
  Sender: FDA-Public Use
  Company Number: US-AMGEN-USASP2012036478

PATIENT
  Age: 58 Year
  Sex: Female

DRUGS (1)
  1. ENBREL [Suspect]
     Indication: PSORIATIC ARTHROPATHY
     Dosage: 50 MG, QWK
     Dates: start: 20120531

REACTIONS (8)
  - INJECTION SITE ERYTHEMA [None]
  - UPPER RESPIRATORY TRACT CONGESTION [None]
  - INJECTION SITE WARMTH [None]
  - PAIN [None]
  - COUGH [None]
  - INJECTION SITE PRURITUS [None]
  - INJECTION SITE SWELLING [None]
  - RHINORRHOEA [None]
